FAERS Safety Report 6416059-6 (Version None)
Quarter: 2009Q4

REPORT INFORMATION
  Report Type: 
  Country: None (occurrence: None)
  Receive Date: 20091027
  Receipt Date: 20091014
  Transmission Date: 20100525
  Serious: No
  Sender: FDA-Public Use
  Company Number: US-ELI_LILLY_AND_COMPANY-US200907005582

PATIENT
  Sex: Male

DRUGS (3)
  1. CYMBALTA [Suspect]
     Dates: start: 20071206, end: 20090101
  2. SEROQUEL [Concomitant]
     Dosage: 1 D/F, UNK
  3. VYTORIN [Concomitant]
     Dosage: 1 D/F, UNK

REACTIONS (1)
  - HEPATIC ENZYME INCREASED [None]
